FAERS Safety Report 23176931 (Version 1)
Quarter: 2023Q4

REPORT INFORMATION
  Report Type: Other
  Country: US (occurrence: None)
  Receive Date: 20231113
  Receipt Date: 20231113
  Transmission Date: 20240109
  Serious: Yes (Hospitalization)
  Sender: FDA-Public Use
  Company Number: US-ROCHE-3455432

PATIENT
  Age: 39 Year
  Sex: Female

DRUGS (1)
  1. RITUXAN [Suspect]
     Active Substance: RITUXIMAB
     Indication: Cutaneous vasculitis
     Route: 041

REACTIONS (2)
  - Renal disorder [Unknown]
  - Off label use [Unknown]
